FAERS Safety Report 12596509 (Version 3)
Quarter: 2016Q3

REPORT INFORMATION
  Report Type: Spontaneous
  Country: IT (occurrence: IT)
  Receive Date: 20160726
  Receipt Date: 20160819
  Transmission Date: 20161109
  Serious: Yes (Hospitalization)
  Sender: FDA-Public Use
  Company Number: IT-PFIZER INC-2016357893

PATIENT
  Age: 68 Year
  Sex: Male

DRUGS (3)
  1. ZOLOFT [Suspect]
     Active Substance: SERTRALINE HYDROCHLORIDE
     Indication: MAJOR DEPRESSION
     Dosage: 15 DF, TOTAL
     Route: 048
     Dates: start: 20160715, end: 20160715
  2. XANAX [Suspect]
     Active Substance: ALPRAZOLAM
     Indication: MAJOR DEPRESSION
     Dosage: 20 DF, TOTAL
     Route: 048
     Dates: start: 20160715, end: 20160715
  3. SIRDALUD [Suspect]
     Active Substance: TIZANIDINE
     Indication: MAJOR DEPRESSION
     Dosage: 20 DF, TOTAL
     Route: 048
     Dates: start: 20160715, end: 20160715

REACTIONS (2)
  - Drug abuse [Recovered/Resolved]
  - Coma [Recovered/Resolved]

NARRATIVE: CASE EVENT DATE: 20160715
